FAERS Safety Report 4829376-8 (Version None)
Quarter: 2005Q4

REPORT INFORMATION
  Report Type: 
  Country: None (occurrence: None)
  Receive Date: 20051028
  Receipt Date: 20050808
  Transmission Date: 20060501
  Serious: No
  Sender: FDA-Public Use
  Company Number: COT_0182_2005

PATIENT
  Age: 58 Year
  Sex: Female
  Weight: 80.7403 kg

DRUGS (9)
  1. VENTAVIS [Suspect]
     Indication: PULMONARY HYPERTENSION
     Dosage: 5 MCG IH
     Route: 055
  2. VENTAVIS [Suspect]
     Indication: PULMONARY HYPERTENSION
     Dosage: 2.5 MG 5XD IH
     Route: 055
  3. ALLOPURINOL [Concomitant]
  4. BUMEX [Concomitant]
  5. ATACAND [Concomitant]
  6. COUMADIN [Concomitant]
  7. NPH INSULIN [Concomitant]
  8. REGULAR INSULIN [Concomitant]
  9. FISH OIL [Concomitant]

REACTIONS (2)
  - ANAEMIA [None]
  - HYPOTENSION [None]
